FAERS Safety Report 10307961 (Version 7)
Quarter: 2015Q2

REPORT INFORMATION
  Report Type: Spontaneous
  Country: US (occurrence: None)
  Receive Date: 20140711
  Receipt Date: 20150506
  Transmission Date: 20150821
  Serious: Yes (Other)
  Sender: FDA-Public Use
  Company Number: ADR-2014-01088

PATIENT
  Age: 54 Year
  Sex: Male

DRUGS (14)
  1. BUPIVACAINE [Suspect]
     Active Substance: BUPIVACAINE
     Indication: INTERVERTEBRAL DISC DEGENERATION
     Dosage: 2.959MG/DAY; SEE B5
  2. VICTOZA [Suspect]
     Active Substance: LIRAGLUTIDE
     Route: 058
  3. PROVIGIL [Suspect]
     Active Substance: MODAFINIL
     Dosage: 200MG 1/2 TABLET TWICE PER DAY
  4. ROXICET [Suspect]
     Active Substance: ACETAMINOPHEN\OXYCODONE HYDROCHLORIDE
     Dosage: 5/325MG EVERY DAY AS NEEDED
  5. LYRICA [Suspect]
     Active Substance: PREGABALIN
  6. CYMBALTA [Suspect]
     Active Substance: DULOXETINE HYDROCHLORIDE
  7. METFORMIN [Suspect]
     Active Substance: METFORMIN HYDROCHLORIDE
     Dosage: EVERY MORNING
  8. FENOFIBRATE. [Suspect]
     Active Substance: FENOFIBRATE
  9. BACLOFEN. [Suspect]
     Active Substance: BACLOFEN
     Indication: INTERVERTEBRAL DISC DEGENERATION
     Dosage: 59.18MCG/DAY; SEE B5?
  10. LANTUS [Suspect]
     Active Substance: INSULIN GLARGINE
     Dosage: 30 UNITS SUBCUTANEOUS EVERY NIGHT AT BEDTIME
     Route: 058
  11. CALCIUM [Suspect]
     Active Substance: CALCIUM
  12. MORPHINE INTRATHECAL [Suspect]
     Active Substance: MORPHINE
  13. FLORASTOR [Suspect]
     Active Substance: SACCHAROMYCES CEREVISIAE
  14. VITAMIN D [Suspect]
     Active Substance: CHOLECALCIFEROL

REACTIONS (27)
  - Dizziness [None]
  - Depression [None]
  - Irritability [None]
  - Nausea [None]
  - Hypoaesthesia [None]
  - Cold sweat [None]
  - Formication [None]
  - Discomfort [None]
  - Drug withdrawal syndrome [None]
  - Weight increased [None]
  - Paraesthesia [None]
  - Impaired driving ability [None]
  - Arthralgia [None]
  - Hyperhidrosis [None]
  - Scab [None]
  - Device infusion issue [None]
  - Hearing impaired [None]
  - Libido decreased [None]
  - Mobility decreased [None]
  - Back pain [None]
  - Initial insomnia [None]
  - Fatigue [None]
  - Balance disorder [None]
  - Asthenia [None]
  - Memory impairment [None]
  - Anxiety [None]
  - Pallor [None]
